FAERS Safety Report 9775407 (Version 2)
Quarter: 2014Q1

REPORT INFORMATION
  Report Type: Spontaneous
  Country: CL (occurrence: CL)
  Receive Date: 20131220
  Receipt Date: 20140110
  Transmission Date: 20141002
  Serious: Yes (Other)
  Sender: FDA-Public Use
  Company Number: CL-PFIZER INC-2013362479

PATIENT
  Age: 91 Year
  Sex: Female

DRUGS (5)
  1. XALATAN [Suspect]
     Indication: GLAUCOMA
     Dosage: 1 DROP PER EYE, 1X/DAY
     Route: 047
     Dates: start: 2008
  2. ENALAPRIL [Concomitant]
     Dosage: 5 MG, 1X/DAY
  3. PRED-FORTE [Concomitant]
     Dosage: UNK
  4. ATROPINE [Concomitant]
     Dosage: UNK
  5. GLAUCOTENSIL [Concomitant]
     Dosage: UNK

REACTIONS (5)
  - Glaucoma [Unknown]
  - Ocular vascular disorder [Not Recovered/Not Resolved]
  - Blindness unilateral [Unknown]
  - Headache [Unknown]
  - Ear pain [Unknown]
